FAERS Safety Report 7293966-6 (Version None)
Quarter: 2011Q1

REPORT INFORMATION
  Report Type: 
  Country: None (occurrence: None)
  Receive Date: 20110203
  Receipt Date: 20110119
  Transmission Date: 20110831
  Serious: Yes (Hospitalization)
  Sender: FDA-Public Use
  Company Number: 017441

PATIENT
  Sex: Male

DRUGS (6)
  1. QUINAPRIL [Concomitant]
  2. REPAGLINIDE [Concomitant]
  3. KEPPRA [Suspect]
     Indication: EPILEPSY
     Dosage: 3000 MG, 1500 MG BID, 3X500 MG IN THE MORNING +  3X500 MG IN THE EVENING, 1000MG-001500MG)
     Dates: start: 20080701
  4. KEPPRA [Suspect]
     Indication: GENERALISED NON-CONVULSIVE EPILEPSY
     Dosage: 3000 MG, 1500 MG BID, 3X500 MG IN THE MORNING +  3X500 MG IN THE EVENING, 1000MG-001500MG)
     Dates: start: 20080701
  5. BISOPROLOL FUMARATE [Concomitant]
  6. LACOSAMIDE [Suspect]
     Indication: EPILEPSY
     Dosage: 50 MG BID MORNING + EVENING, DOSE UPTITRATED

REACTIONS (11)
  - BLOOD GLUCOSE INCREASED [None]
  - SKIN DISORDER [None]
  - ASPARTATE AMINOTRANSFERASE INCREASED [None]
  - GAMMA-GLUTAMYLTRANSFERASE INCREASED [None]
  - HAEMORRHAGE [None]
  - ALANINE AMINOTRANSFERASE INCREASED [None]
  - ANTICONVULSANT DRUG LEVEL ABOVE THERAPEUTIC [None]
  - HEPATOTOXICITY [None]
  - TONGUE INJURY [None]
  - EPILEPSY [None]
  - LACERATION [None]
